FAERS Safety Report 19184417 (Version 2)
Quarter: 2021Q2

REPORT INFORMATION
  Report Type: Spontaneous
  Country: JP (occurrence: JP)
  Receive Date: 20210427
  Receipt Date: 20210623
  Transmission Date: 20210717
  Serious: Yes (Hospitalization, Other)
  Sender: FDA-Public Use
  Company Number: JP-ASTELLAS-2020JP013577

PATIENT
  Sex: Female
  Weight: 46 kg

DRUGS (21)
  1. XOSPATA [Suspect]
     Active Substance: GILTERITINIB
     Route: 048
     Dates: start: 20210219
  2. ACLACINON [Concomitant]
     Active Substance: ACLARUBICIN HYDROCHLORIDE
     Indication: ACUTE MYELOID LEUKAEMIA
     Route: 065
     Dates: start: 20200828, end: 20200829
  3. GRANISETRON [Concomitant]
     Active Substance: GRANISETRON
     Indication: PROPHYLAXIS
     Route: 065
     Dates: start: 20200828, end: 20200831
  4. OLANZAPINE OD [Concomitant]
     Active Substance: OLANZAPINE
     Indication: PROPHYLAXIS
     Route: 065
     Dates: start: 20200831
  5. VANCOMYCIN [Concomitant]
     Active Substance: VANCOMYCIN
     Indication: FEBRILE NEUTROPENIA
     Route: 065
     Dates: start: 20200903, end: 20200907
  6. TAKECAB [Concomitant]
     Active Substance: VONOPRAZAN FUMARATE
     Indication: GASTROINTESTINAL MUCOSAL DISORDER
     Route: 065
     Dates: start: 20200826
  7. CUBICIN [Concomitant]
     Active Substance: DAPTOMYCIN
     Indication: FEBRILE NEUTROPENIA
     Route: 065
     Dates: start: 20200907, end: 20200923
  8. XOSPATA [Suspect]
     Active Substance: GILTERITINIB
     Route: 048
     Dates: start: 20200913, end: 20201109
  9. POSACONAZOLE [Concomitant]
     Active Substance: POSACONAZOLE
     Indication: PRODUCT USED FOR UNKNOWN INDICATION
     Dosage: UNK UNK, UNKNOWN FREQ.
     Route: 065
     Dates: start: 20200828
  10. ACLACINON [Concomitant]
     Active Substance: ACLARUBICIN HYDROCHLORIDE
     Indication: CHEMOTHERAPY
  11. URSODEOXYCHOLIC ACID APOTEX [Concomitant]
     Active Substance: URSODIOL
     Indication: LUNG DISORDER
     Route: 065
     Dates: start: 20200904
  12. XOSPATA [Suspect]
     Active Substance: GILTERITINIB
     Indication: ACUTE MYELOID LEUKAEMIA
     Route: 048
     Dates: start: 20200831, end: 20200903
  13. FUROSEMIDE. [Concomitant]
     Active Substance: FUROSEMIDE
     Indication: DIFFERENTIATION SYNDROME
     Dosage: UNK UNK, UNKNOWN FREQ.
     Route: 065
     Dates: start: 20200903, end: 20200906
  14. HYDROCORTISONE. [Concomitant]
     Active Substance: HYDROCORTISONE
     Indication: DIFFERENTIATION SYNDROME
     Dosage: UNK UNK, UNKNOWN FREQ.
     Route: 065
     Dates: start: 20200903, end: 20200906
  15. DAIPHEN [Concomitant]
     Active Substance: SULFAMETHOXAZOLE\TRIMETHOPRIM
     Indication: PROPHYLAXIS
     Route: 065
     Dates: start: 20200826
  16. MAGMITT [Concomitant]
     Active Substance: MAGNESIUM OXIDE
     Indication: CONSTIPATION
     Route: 065
     Dates: start: 20200826
  17. CYLOCIDE [Concomitant]
     Active Substance: CYTARABINE
     Indication: CHEMOTHERAPY
     Route: 065
     Dates: start: 20200829, end: 20200831
  18. MIYA?BM [Concomitant]
     Active Substance: CLOSTRIDIUM BUTYRICUM SPORES STRAIN M-55
     Indication: DIARRHOEA
     Route: 065
     Dates: start: 20200826, end: 20200901
  19. MICAFUNGIN SODIUM [Concomitant]
     Active Substance: MICAFUNGIN SODIUM
     Indication: PROPHYLAXIS
     Route: 065
     Dates: start: 20200828, end: 20200925
  20. CYLOCIDE [Concomitant]
     Active Substance: CYTARABINE
     Indication: ACUTE MYELOID LEUKAEMIA
     Route: 065
     Dates: start: 20200828
  21. MEROPENEM. [Concomitant]
     Active Substance: MEROPENEM
     Indication: FEBRILE NEUTROPENIA
     Route: 065
     Dates: start: 20200828, end: 20200925

REACTIONS (3)
  - Differentiation syndrome [Recovered/Resolved]
  - Hyperbilirubinaemia [Recovered/Resolved]
  - Blood alkaline phosphatase increased [Recovering/Resolving]

NARRATIVE: CASE EVENT DATE: 20200902
